FAERS Safety Report 14899219 (Version 3)
Quarter: 2018Q3

REPORT INFORMATION
  Report Type: Report from Study
  Country: US (occurrence: US)
  Receive Date: 20180516
  Receipt Date: 20180925
  Transmission Date: 20181010
  Serious: Yes (Life-Threatening, Hospitalization, Disabling, Other)
  Sender: FDA-Public Use
  Company Number: US-AMGEN-USASL2018063326

PATIENT
  Age: 74 Year
  Sex: Female
  Weight: 85.71 kg

DRUGS (25)
  1. ENOXAPARIN [Concomitant]
     Active Substance: ENOXAPARIN
  2. REPATHA [Suspect]
     Active Substance: EVOLOCUMAB
     Indication: HYPERLIPIDAEMIA
     Dosage: UNK
     Route: 065
     Dates: end: 20180404
  3. SYNTHROID [Concomitant]
     Active Substance: LEVOTHYROXINE SODIUM
  4. GABAPENTIN. [Concomitant]
     Active Substance: GABAPENTIN
  5. COLACE [Concomitant]
     Active Substance: DOCUSATE SODIUM
  6. LISINOPRIL. [Concomitant]
     Active Substance: LISINOPRIL
     Dosage: 10 MG, BID
  7. LOVENOX [Concomitant]
     Active Substance: ENOXAPARIN SODIUM
     Dosage: 40 MG, QD
     Route: 058
  8. AMLODIPINE [Concomitant]
     Active Substance: AMLODIPINE BESYLATE
     Dosage: 10 MG, BID
     Route: 048
  9. ASPIRIN. [Concomitant]
     Active Substance: ASPIRIN
     Dosage: 81 MG, QD
  10. FLUTICASONE. [Concomitant]
     Active Substance: FLUTICASONE
  11. ASCORBIC ACID. [Concomitant]
     Active Substance: ASCORBIC ACID
     Dosage: 1000 MG, QD
  12. LEVOTHYROXINE. [Concomitant]
     Active Substance: LEVOTHYROXINE
     Dosage: 50 MCG, BID
  13. HUMALOG [Concomitant]
     Active Substance: INSULIN LISPRO
  14. CALCIUM CARBONATE. [Concomitant]
     Active Substance: CALCIUM CARBONATE
     Dosage: 1000 MG, BID
     Route: 048
  15. INSULIN [Concomitant]
     Active Substance: INSULIN NOS
     Indication: DIABETES MELLITUS
  16. REPATHA [Suspect]
     Active Substance: EVOLOCUMAB
     Indication: HYPERCHOLESTEROLAEMIA
     Dosage: 140 MG, Q2WK
     Route: 065
     Dates: start: 20170208
  17. OMEPRAZOLE. [Concomitant]
     Active Substance: OMEPRAZOLE
  18. PANTOPRAZOLE [Concomitant]
     Active Substance: PANTOPRAZOLE
  19. SOLU?MEDROL [Concomitant]
     Active Substance: METHYLPREDNISOLONE SODIUM SUCCINATE
     Dosage: 125 MG, QID
  20. COREG [Concomitant]
     Active Substance: CARVEDILOL
  21. AZATHIOPRINE. [Concomitant]
     Active Substance: AZATHIOPRINE
     Dosage: 50 MG, QD
  22. CEFAZOLIN [Concomitant]
     Active Substance: CEFAZOLIN
     Dosage: 1 G, Q6H
  23. SULFASALAZINE. [Concomitant]
     Active Substance: SULFASALAZINE
  24. CARVEDIOL [Concomitant]
     Active Substance: CARVEDILOL
     Dosage: 25 MG, BID
     Route: 048
  25. TYLENOL [Concomitant]
     Active Substance: ACETAMINOPHEN

REACTIONS (7)
  - Duodenal ulcer [Unknown]
  - Myasthenia gravis [Recovering/Resolving]
  - Hypoglycaemia [Recovering/Resolving]
  - Loss of consciousness [Recovered/Resolved]
  - Atelectasis [Unknown]
  - Staphylococcal infection [Unknown]
  - Respiratory failure [Unknown]

NARRATIVE: CASE EVENT DATE: 2018
